FAERS Safety Report 6124434-2 (Version None)
Quarter: 2009Q1

REPORT INFORMATION
  Report Type: 
  Country: None (occurrence: None)
  Receive Date: 20090317
  Receipt Date: 20090317
  Transmission Date: 20090719
  Serious: Yes (Hospitalization)
  Sender: FDA-Public Use
  Company Number: None

PATIENT
  Age: 33 Year
  Sex: Male
  Weight: 83.9154 kg

DRUGS (1)
  1. CHANTIX [Suspect]
     Indication: SMOKING CESSATION THERAPY
     Dosage: 1MG 2X DAY PO
     Route: 048
     Dates: start: 20090101, end: 20090301

REACTIONS (5)
  - DEHYDRATION [None]
  - DIABETES MELLITUS [None]
  - HYPOAESTHESIA [None]
  - MUSCLE SPASMS [None]
  - VISION BLURRED [None]
